FAERS Safety Report 4557961-X (Version None)
Quarter: 2005Q1

REPORT INFORMATION
  Report Type: 
  Country: None (occurrence: None)
  Receive Date: 20050121
  Receipt Date: 20040310
  Transmission Date: 20050727
  Serious: No
  Sender: FDA-Public Use
  Company Number: US-BRISTOL-MYERS SQUIBB COMPANY-12530689

PATIENT
  Sex: Male

DRUGS (1)
  1. SERZONE [Suspect]

REACTIONS (2)
  - INSOMNIA [None]
  - POLLAKIURIA [None]
